FAERS Safety Report 6110684-8 (Version None)
Quarter: 2009Q1

REPORT INFORMATION
  Report Type: 
  Country: None (occurrence: None)
  Receive Date: 20090310
  Receipt Date: 20090302
  Transmission Date: 20090719
  Serious: Yes (Life-Threatening, Hospitalization)
  Sender: FDA-Public Use
  Company Number: FR-AMGEN-UK321095

PATIENT
  Sex: Male
  Weight: 86 kg

DRUGS (4)
  1. NEUPOGEN [Suspect]
     Indication: DRUG USE FOR UNKNOWN INDICATION
     Route: 065
     Dates: start: 20081028, end: 20081103
  2. HEMATOPOETIC PROGENITOR CELLS HUMAN [Concomitant]
     Dates: start: 20081023
  3. VANCOMYCIN [Concomitant]
     Dates: start: 20081028
  4. IMIPENEM AND CILASTATIN SODIUM [Concomitant]
     Dates: start: 20081028

REACTIONS (1)
  - VENOOCCLUSIVE DISEASE [None]
